FAERS Safety Report 22993576 (Version 2)
Quarter: 2023Q4

REPORT INFORMATION
  Report Type: Spontaneous
  Country: JP (occurrence: JP)
  Receive Date: 20230927
  Receipt Date: 20231006
  Transmission Date: 20240110
  Serious: Yes (Life-Threatening, Hospitalization)
  Sender: FDA-Public Use
  Company Number: JP-MYLANLABS-2023M1101536

PATIENT
  Age: 78 Year
  Sex: Female

DRUGS (2)
  1. OLANZAPINE [Suspect]
     Active Substance: OLANZAPINE
     Indication: Schizophrenia
     Dosage: 5 MILLIGRAM, QD
     Route: 048
  2. VALPROIC ACID [Concomitant]
     Active Substance: VALPROIC ACID
     Indication: Schizophrenia
     Dosage: 200 MILLIGRAM, QD
     Route: 048

REACTIONS (6)
  - Respiratory depression [Recovering/Resolving]
  - Cardiomegaly [Unknown]
  - Pulmonary congestion [Unknown]
  - Cardiac failure congestive [Unknown]
  - Respiratory acidosis [Unknown]
  - Metabolic alkalosis [Unknown]
